FAERS Safety Report 7777624-7 (Version None)
Quarter: 2011Q3

REPORT INFORMATION
  Report Type: 
  Country: None (occurrence: None)
  Receive Date: 20110926
  Receipt Date: 20110922
  Transmission Date: 20111222
  Serious: Yes (Hospitalization, Other)
  Sender: FDA-Public Use
  Company Number: US-PFIZER INC-2011162692

PATIENT
  Age: 47 Year
  Sex: Male
  Weight: 78 kg

DRUGS (4)
  1. BLINDED NO SUBJECT DRUG [Suspect]
     Indication: RENAL CELL CARCINOMA
     Dosage: UNK MG, CYCLIC
     Route: 048
     Dates: start: 20100511, end: 20110523
  2. PLACEBO [Suspect]
     Indication: RENAL CELL CARCINOMA
     Dosage: UNK MG, CYCLIC
     Route: 048
     Dates: start: 20100511, end: 20110523
  3. SUNITINIB MALATE [Suspect]
     Indication: RENAL CELL CARCINOMA
     Dosage: UNK MG, CYCLIC
     Route: 048
     Dates: start: 20100511, end: 20110523
  4. BLINDED SORAFENIB [Suspect]
     Indication: RENAL CELL CARCINOMA
     Dosage: UNK MG, CYCLIC
     Route: 048
     Dates: start: 20100511, end: 20110523

REACTIONS (5)
  - PYREXIA [None]
  - ASPARTATE AMINOTRANSFERASE INCREASED [None]
  - ALANINE AMINOTRANSFERASE INCREASED [None]
  - PNEUMONIA [None]
  - HYPOKALAEMIA [None]
